FAERS Safety Report 9268249 (Version 1)
Quarter: 2013Q2

REPORT INFORMATION
  Report Type: Spontaneous
  Country: US (occurrence: US)
  Receive Date: 20130502
  Receipt Date: 20130502
  Transmission Date: 20140414
  Serious: No
  Sender: FDA-Public Use
  Company Number: US-ALEXION-A201202163

PATIENT
  Sex: Male

DRUGS (1)
  1. SOLIRIS 300MG [Suspect]
     Dosage: UNK
     Route: 042

REACTIONS (5)
  - Chromaturia [Unknown]
  - Red blood cell count decreased [Unknown]
  - Animal bite [Unknown]
  - Back pain [None]
  - Infection [Unknown]
